FAERS Safety Report 7637493-2 (Version None)
Quarter: 2011Q3

REPORT INFORMATION
  Report Type: 
  Country: None (occurrence: None)
  Receive Date: 20110726
  Receipt Date: 20110714
  Transmission Date: 20111222
  Serious: Yes (Other)
  Sender: FDA-Public Use
  Company Number: PHHY2010CA05531

PATIENT
  Sex: Male

DRUGS (3)
  1. EXJADE [Suspect]
     Indication: MYELODYSPLASTIC SYNDROME
     Dosage: 500 MG, QD
     Route: 048
     Dates: start: 20100126
  2. EXJADE [Suspect]
     Dosage: 1000 MG, UNK
     Route: 048
  3. EXJADE [Suspect]
     Dosage: 500 MG, UNK
     Route: 048

REACTIONS (3)
  - HAEMOLYTIC ANAEMIA [None]
  - CONSTIPATION [None]
  - DIARRHOEA [None]
